FAERS Safety Report 9034744 (Version 1)
Quarter: 2013Q1

REPORT INFORMATION
  Report Type: Spontaneous
  Country: GB (occurrence: None)
  Receive Date: 20130111
  Receipt Date: 20130111
  Transmission Date: 20140127
  Serious: Yes (Other)
  Sender: FDA-Public Use
  Company Number: 2012AP004470

PATIENT
  Sex: Male

DRUGS (3)
  1. OMEPRAZOLE [Suspect]
     Indication: ABDOMINAL DISTENSION
  2. OMEPRAZOLE [Suspect]
     Indication: ABDOMINAL PAIN UPPER
  3. OMEPRAZOLE [Suspect]
     Indication: DYSPHAGIA

REACTIONS (3)
  - Sleep disorder [None]
  - Abdominal pain upper [None]
  - Dysphagia [None]
